FAERS Safety Report 9063387 (Version 1)
Quarter: 2013Q1

REPORT INFORMATION
  Report Type: Report from Study
  Country: US (occurrence: US)
  Receive Date: 20130129
  Receipt Date: 20130129
  Transmission Date: 20140127
  Serious: No
  Sender: FDA-Public Use
  Company Number: US-ABBOTT-12P-163-0945950-00

PATIENT
  Age: 64 Year
  Sex: Female

DRUGS (9)
  1. HUMIRA 40 MG/0.8 ML PEN [Suspect]
     Indication: PSORIASIS
     Dates: start: 20120507, end: 20120612
  2. LISINOPRIL [Suspect]
     Indication: BLOOD PRESSURE
  3. SYNTHROID [Concomitant]
     Indication: HYPOTHYROIDISM
  4. ESTRADIOL [Concomitant]
     Indication: HYSTERECTOMY
  5. WOMEN^S ONCE A DAY VITAMIN [Concomitant]
     Indication: PRODUCT USED FOR UNKNOWN INDICATION
  6. CITRACAL [Concomitant]
     Indication: PRODUCT USED FOR UNKNOWN INDICATION
  7. MULTIVITAMIN [Concomitant]
     Indication: VITAMIN SUPPLEMENTATION
     Dosage: OTC DAILY
  8. CALCIUM [Concomitant]
     Indication: MINERAL SUPPLEMENTATION
  9. BENICAR [Concomitant]
     Indication: BLOOD PRESSURE

REACTIONS (6)
  - Cough [Not Recovered/Not Resolved]
  - Dry throat [Not Recovered/Not Resolved]
  - Hypersensitivity [Not Recovered/Not Resolved]
  - Pneumonia [Not Recovered/Not Resolved]
  - Dyspnoea [Recovering/Resolving]
  - Gastrooesophageal reflux disease [Not Recovered/Not Resolved]
